FAERS Safety Report 5406790-3 (Version None)
Quarter: 2007Q3

REPORT INFORMATION
  Report Type: 
  Country: None (occurrence: None)
  Receive Date: 20070807
  Receipt Date: 20070802
  Transmission Date: 20080115
  Serious: Yes (Hospitalization)
  Sender: FDA-Public Use
  Company Number: US-JNJFOC-20070706514

PATIENT
  Age: 73 Year
  Sex: Male
  Weight: 88 kg

DRUGS (14)
  1. DOXORUBICIN HCL [Suspect]
     Route: 042
  2. DOXORUBICIN HCL [Suspect]
     Indication: NON-HODGKIN'S LYMPHOMA
     Route: 042
  3. CYCLOPHOSPHAMIDE [Suspect]
     Indication: NON-HODGKIN'S LYMPHOMA
  4. RITUXAN [Suspect]
     Indication: NON-HODGKIN'S LYMPHOMA
  5. VINCRISTINE [Suspect]
     Indication: NON-HODGKIN'S LYMPHOMA
  6. PREDNISOLONE [Suspect]
     Indication: NON-HODGKIN'S LYMPHOMA
  7. NEULASTA [Suspect]
     Indication: NON-HODGKIN'S LYMPHOMA
  8. CENTRUM [Concomitant]
  9. DILTIAZEM [Concomitant]
  10. DOXAZOSIN MESYLATE [Concomitant]
  11. GLYBURIDE [Concomitant]
  12. PREVACID [Concomitant]
  13. SYNTHROID [Concomitant]
  14. TOPROL-XL [Concomitant]

REACTIONS (1)
  - ATRIAL FIBRILLATION [None]
